FAERS Safety Report 10269951 (Version 1)
Quarter: 2014Q2

REPORT INFORMATION
  Report Type: Spontaneous
  Country: US (occurrence: None)
  Receive Date: 20140626
  Receipt Date: 20140626
  Transmission Date: 20141212
  Serious: Yes (Hospitalization, Other)
  Sender: FDA-Public Use
  Company Number: None

PATIENT
  Age: 52 Year
  Sex: Female
  Weight: 128.37 kg

DRUGS (5)
  1. AMOXICILLIN/CLAVULANIC ACID [Suspect]
     Indication: INFECTION
     Dosage: 875/125?1 TAB TWICE A DAY ?TWICE A DAY?ORALLY/MOUTH
     Route: 048
     Dates: start: 20140528, end: 20140603
  2. MATAP ACETAMINOPHEN [Concomitant]
  3. DIETARY SUPPLEMENT [Concomitant]
  4. ALLEVE LIQUID GELS (NAPROXEN SODIUM) [Concomitant]
  5. NAPROXEN SODIUM [Concomitant]

REACTIONS (7)
  - Pruritus [None]
  - Diarrhoea [None]
  - Constipation [None]
  - Joint stiffness [None]
  - Joint stiffness [None]
  - Hypersensitivity [None]
  - Fluid retention [None]
